FAERS Safety Report 5531255-8 (Version None)
Quarter: 2007Q4

REPORT INFORMATION
  Report Type: 
  Country: None (occurrence: None)
  Receive Date: 20071127
  Receipt Date: 20071030
  Transmission Date: 20080405
  Serious: Yes (Hospitalization)
  Sender: FDA-Public Use
  Company Number: GXKR2007GB09810

PATIENT
  Age: 14 Year
  Sex: Male

DRUGS (2)
  1. PARACETAMOL (NGX)(PARACETAMOL) UNKNOWN [Suspect]
     Indication: SUICIDE ATTEMPT
     Dosage: 45 G, ORAL
     Route: 048
  2. PHENYTOIN [Suspect]
     Dosage: 200 MG, BID

REACTIONS (7)
  - ABDOMINAL PAIN UPPER [None]
  - DRUG INTERACTION [None]
  - HAEMODIALYSIS [None]
  - HEPATIC ENCEPHALOPATHY [None]
  - HEPATIC FAILURE [None]
  - INTENTIONAL OVERDOSE [None]
  - METABOLIC ACIDOSIS [None]
